FAERS Safety Report 8290297-2 (Version None)
Quarter: 2012Q2

REPORT INFORMATION
  Report Type: 
  Country: None (occurrence: None)
  Receive Date: 20120417
  Receipt Date: 20120403
  Transmission Date: 20120825
  Serious: Yes (Hospitalization)
  Sender: FDA-Public Use
  Company Number: PHHO2009IT09601

PATIENT
  Sex: Male
  Weight: 62 kg

DRUGS (6)
  1. EVEROLIMUS [Suspect]
     Dosage: 3 MG, UNK
     Route: 048
     Dates: start: 20090622, end: 20090801
  2. TACROLIMUS [Suspect]
     Dosage: 4 MG, UNK
     Route: 048
     Dates: start: 20090804
  3. EVEROLIMUS [Suspect]
     Indication: LIVER TRANSPLANT
     Dosage: 3 MG, UNK
     Route: 048
     Dates: start: 20090527, end: 20090609
  4. PREDNISONE TAB [Concomitant]
     Indication: LIVER TRANSPLANT
     Dosage: 15 MG, QD
     Route: 048
     Dates: start: 20090429
  5. TACROLIMUS [Suspect]
     Indication: LIVER TRANSPLANT
     Dosage: 12 MG, UNK
     Route: 048
     Dates: start: 20090429, end: 20090801
  6. PREDNISONE TAB [Concomitant]
     Dosage: 25 MG/DAY
     Route: 048
     Dates: start: 20090429

REACTIONS (2)
  - PULMONARY EMBOLISM [None]
  - DEEP VEIN THROMBOSIS [None]
